FAERS Safety Report 17358845 (Version 1)
Quarter: 2020Q1

REPORT INFORMATION
  Report Type: Spontaneous
  Country: US (occurrence: US)
  Receive Date: 20200202
  Receipt Date: 20200202
  Transmission Date: 20200409
  Serious: No
  Sender: FDA-Public Use
  Company Number: US-TEVA-2020-US-1176099

PATIENT
  Age: 71 Year
  Sex: Male

DRUGS (4)
  1. ALBTEROL SULFATE HFA [Suspect]
     Active Substance: ALBUTEROL SULFATE
     Indication: BRONCHITIS
  2. VICKS NYQUIL [Concomitant]
     Active Substance: ACETAMINOPHEN\DEXTROMETHORPHAN HYDROBROMIDE\DOXYLAMINE SUCCINATE
     Indication: COUGH
     Dosage: DAY TIME AND NIGHT TIME AT A DOSE OF 2 PILLS A DAY FOR 2 WEEKS
     Route: 065
  3. ALBTEROL SULFATE HFA [Suspect]
     Active Substance: ALBUTEROL SULFATE
     Indication: COUGH
     Route: 065
     Dates: start: 20200117
  4. ALBTEROL SULFATE HFA [Suspect]
     Active Substance: ALBUTEROL SULFATE
     Indication: WHEEZING

REACTIONS (4)
  - Drug ineffective [Unknown]
  - Malaise [Recovered/Resolved]
  - Nausea [Recovered/Resolved]
  - Drug hypersensitivity [Recovered/Resolved]

NARRATIVE: CASE EVENT DATE: 20200117
